FAERS Safety Report 9781073 (Version 1)
Quarter: 2013Q4

REPORT INFORMATION
  Report Type: Spontaneous
  Country: US (occurrence: US)
  Receive Date: 20131224
  Receipt Date: 20131224
  Transmission Date: 20140711
  Serious: Yes (Other)
  Sender: FDA-Public Use
  Company Number: 2013SP003665

PATIENT
  Sex: 0

DRUGS (1)
  1. LUNESTA [Suspect]
     Route: 048

REACTIONS (1)
  - Cystitis haemorrhagic [Unknown]
